FAERS Safety Report 23785149 (Version 1)
Quarter: 2024Q2

REPORT INFORMATION
  Report Type: Spontaneous
  Country: US (occurrence: None)
  Receive Date: 20240425
  Receipt Date: 20240425
  Transmission Date: 20240716
  Serious: Yes (unspecified)
  Sender: FDA-Public Use
  Company Number: None

PATIENT
  Age: 65 Year
  Sex: Male
  Weight: 76 kg

DRUGS (9)
  1. ZELBORAF [Suspect]
     Active Substance: VEMURAFENIB
     Indication: Malignant melanoma
     Dosage: 980 MG BID ORAL
     Route: 048
     Dates: start: 20231121
  2. COTELLIC [Suspect]
     Active Substance: COBIMETINIB
     Indication: Malignant melanoma
     Dosage: 60 MG DAILY ORAL?
     Route: 048
     Dates: start: 20231121
  3. GLIPIZIDE [Concomitant]
     Active Substance: GLIPIZIDE
  4. MELATONIN [Concomitant]
     Active Substance: MELATONIN
  5. METFORMIN [Concomitant]
     Active Substance: METFORMIN HYDROCHLORIDE
  6. ZOFRAN [Concomitant]
     Active Substance: ONDANSETRON HYDROCHLORIDE
  7. TAMSULOSIN [Concomitant]
     Active Substance: TAMSULOSIN
  8. TIZANIDINE [Concomitant]
     Active Substance: TIZANIDINE
  9. CEPHALEXIN [Concomitant]
     Active Substance: CEPHALEXIN

REACTIONS (3)
  - Peripheral swelling [None]
  - Cellulitis [None]
  - Lymphadenectomy [None]

NARRATIVE: CASE EVENT DATE: 20240414
